FAERS Safety Report 16470029 (Version 1)
Quarter: 2019Q2

REPORT INFORMATION
  Report Type: Spontaneous
  Country: US (occurrence: US)
  Receive Date: 20190624
  Receipt Date: 20190624
  Transmission Date: 20190711
  Serious: No
  Sender: FDA-Public Use
  Company Number: US-MYLANLABS-2019M1054011

PATIENT
  Sex: Female
  Weight: 53 kg

DRUGS (1)
  1. ESTRADIOL TRANSDERMAL SYSTEM [Suspect]
     Active Substance: ESTRADIOL
     Indication: MENOPAUSE
     Dosage: UNK

REACTIONS (8)
  - Feeling of despair [Unknown]
  - Anxiety [Unknown]
  - Depression [Unknown]
  - Decreased appetite [Unknown]
  - Disturbance in attention [Unknown]
  - Fatigue [Unknown]
  - Feeling abnormal [Unknown]
  - Depressed mood [Unknown]
